FAERS Safety Report 6206183-5 (Version None)
Quarter: 2009Q2

REPORT INFORMATION
  Report Type: 
  Country: None (occurrence: None)
  Receive Date: 20090528
  Receipt Date: 20081008
  Transmission Date: 20091009
  Serious: No
  Sender: FDA-Public Use
  Company Number: US-KINGPHARMUSA00001-K200801184

PATIENT
  Sex: Male

DRUGS (1)
  1. AVINZA [Suspect]
     Indication: PAIN
     Dosage: 60 MG, QD
     Route: 048
     Dates: start: 20080912, end: 20080916

REACTIONS (3)
  - EPISTAXIS [None]
  - PRURITUS [None]
  - PRURITUS GENITAL [None]
